FAERS Safety Report 5773393-0 (Version None)
Quarter: 2008Q2

REPORT INFORMATION
  Report Type: 
  Country: None (occurrence: None)
  Receive Date: 20080616
  Receipt Date: 20080312
  Transmission Date: 20081010
  Serious: No
  Sender: FDA-Public Use
  Company Number: US-BAYER-200714139BCC

PATIENT
  Age: 80 Year
  Sex: Female
  Weight: 82 kg

DRUGS (4)
  1. ALEVE (CAPLET) [Suspect]
     Indication: FIBROMYALGIA
     Dosage: AS USED: 220 MG  UNIT DOSE: 220 MG
     Route: 048
     Dates: start: 20071208, end: 20071208
  2. CELEBREX [Concomitant]
  3. BLOOD PRESSURE MEDICATION [Concomitant]
  4. THYROID TAB [Concomitant]

REACTIONS (4)
  - ASTHENIA [None]
  - INSOMNIA [None]
  - NAUSEA [None]
  - NERVOUSNESS [None]
